FAERS Safety Report 4762021-9 (Version None)
Quarter: 2005Q3

REPORT INFORMATION
  Report Type: 
  Country: None (occurrence: None)
  Receive Date: 20050831
  Receipt Date: 20050516
  Transmission Date: 20060218
  Serious: No
  Sender: FDA-Public Use
  Company Number: PHEH2005US05573

PATIENT
  Age: 83 Year
  Sex: Female

DRUGS (7)
  1. ENABLEX [Suspect]
     Indication: HYPERTONIC BLADDER
     Dosage: 7.5 MG QD
     Dates: start: 20050514, end: 20050514
  2. PROTONIX [Concomitant]
  3. LEVOXYL [Concomitant]
  4. OCUVITE (ASCORBIC ACID, RETINOL, TOCOPHEROL) [Concomitant]
  5. NITROFURANTOIN [Concomitant]
  6. ASPIRIN [Concomitant]
  7. ZANTAC [Concomitant]

REACTIONS (4)
  - ABDOMINAL PAIN UPPER [None]
  - CONDITION AGGRAVATED [None]
  - CONSTIPATION [None]
  - SOMNOLENCE [None]
